FAERS Safety Report 9531752 (Version 1)
Quarter: 2013Q3

REPORT INFORMATION
  Report Type: Spontaneous
  Country: US (occurrence: US)
  Receive Date: 20130918
  Receipt Date: 20130918
  Transmission Date: 20140515
  Serious: No
  Sender: FDA-Public Use
  Company Number: US-PFIZER INC-2013265610

PATIENT
  Sex: Male

DRUGS (1)
  1. DEPO-MEDROL [Suspect]
     Dosage: UNK
     Dates: start: 201308

REACTIONS (2)
  - Blood glucose increased [Unknown]
  - Hepatic function abnormal [Unknown]
